FAERS Safety Report 8624441-1 (Version None)
Quarter: 2012Q3

REPORT INFORMATION
  Report Type: 
  Country: None (occurrence: None)
  Receive Date: 20120827
  Receipt Date: 20120821
  Transmission Date: 20120928
  Serious: Yes (Death, Other)
  Sender: FDA-Public Use
  Company Number: JP-PFIZER INC-2012130799

PATIENT
  Age: 68 Year
  Sex: Male
  Weight: 37 kg

DRUGS (5)
  1. ZYVOX [Suspect]
     Indication: PNEUMONIA STAPHYLOCOCCAL
     Dosage: 600 MG, 2X/DAY
     Route: 041
     Dates: start: 20120507, end: 20120519
  2. MEROPENEM [Concomitant]
     Indication: PNEUMONIA
     Dosage: 500 G, 3X/DAY
     Route: 041
     Dates: start: 20120517, end: 20120530
  3. ZYVOX [Suspect]
     Dosage: 600 MG, 2X/DAY
     Route: 041
     Dates: start: 20120526, end: 20120601
  4. TEICOPLANIN [Concomitant]
     Indication: PNEUMONIA STAPHYLOCOCCAL
     Dosage: 400 MG, 1X/DAY
     Route: 041
     Dates: start: 20120521, end: 20120523
  5. PICILLIBACTA [Concomitant]
     Indication: PNEUMONIA
     Dosage: 1.5 G, 3X/DAY
     Route: 041
     Dates: start: 20120514, end: 20120517

REACTIONS (4)
  - PNEUMONIA [None]
  - PLATELET COUNT DECREASED [None]
  - HEPATIC FUNCTION ABNORMAL [None]
  - HYPONATRAEMIA [None]
